FAERS Safety Report 6739197-7 (Version None)
Quarter: 2010Q2

REPORT INFORMATION
  Report Type: 
  Country: None (occurrence: None)
  Receive Date: 20100525
  Receipt Date: 20100420
  Transmission Date: 20101027
  Serious: No
  Sender: FDA-Public Use
  Company Number: A0851643A

PATIENT
  Sex: Male

DRUGS (1)
  1. VERAMYST [Suspect]
     Indication: DRUG USE FOR UNKNOWN INDICATION
     Route: 045
     Dates: start: 20080101

REACTIONS (4)
  - EPISTAXIS [None]
  - NASAL DISCOMFORT [None]
  - OVERDOSE [None]
  - PRODUCT QUALITY ISSUE [None]
